FAERS Safety Report 19470405 (Version 1)
Quarter: 2021Q2

REPORT INFORMATION
  Report Type: Spontaneous
  Country: DE (occurrence: DE)
  Receive Date: 20210629
  Receipt Date: 20210629
  Transmission Date: 20210717
  Serious: Yes (Hospitalization)
  Sender: FDA-Public Use
  Company Number: DE-AUROBINDO-AUR-APL-2021-027223

PATIENT
  Age: 84 Year
  Sex: Female

DRUGS (11)
  1. PROVAS [Concomitant]
     Active Substance: VALSARTAN
     Indication: PRODUCT USED FOR UNKNOWN INDICATION
     Dosage: 160 MILLIGRAM (1?0?0?0)
     Route: 048
  2. HYDROCHLOROTHIAZIDE  TABLETS [Suspect]
     Active Substance: HYDROCHLOROTHIAZIDE
     Indication: PRODUCT USED FOR UNKNOWN INDICATION
     Dosage: 25 MILLIGRAM (PAUSED SINCE YESTERDAY)
     Route: 048
  3. CARVEDI DENK [Concomitant]
     Indication: PRODUCT USED FOR UNKNOWN INDICATION
     Dosage: 25 MILLIGRAM (0?0?1?0)
     Route: 048
  4. ALDACTONE [Concomitant]
     Active Substance: SPIRONOLACTONE
     Indication: PRODUCT USED FOR UNKNOWN INDICATION
     Dosage: 50 MILLIGRAM (0.5?0?0?0)
     Route: 048
  5. URIVESC [Concomitant]
     Active Substance: TROSPIUM CHLORIDE
     Indication: PRODUCT USED FOR UNKNOWN INDICATION
     Dosage: 60 MILLIGRAM ( 0?0?1?0)
     Route: 048
  6. MOXOBETA [Concomitant]
     Active Substance: MOXONIDINE
     Indication: PRODUCT USED FOR UNKNOWN INDICATION
     Dosage: 0.3 MILLIGRAM (1?0?1?0)
     Route: 048
  7. ASPIRINE [Concomitant]
     Active Substance: ASPIRIN
     Indication: PRODUCT USED FOR UNKNOWN INDICATION
     Dosage: 100 MILLIGRAM (0?1?0?0)
     Route: 048
  8. GLUCOPHAGE [Concomitant]
     Active Substance: METFORMIN HYDROCHLORIDE
     Indication: PRODUCT USED FOR UNKNOWN INDICATION
     Dosage: 850 MILLIGRAM (1?0?0?0)
     Route: 048
  9. AMLODIGAMMA TOP [Concomitant]
     Indication: PRODUCT USED FOR UNKNOWN INDICATION
     Dosage: 5 MILLIGRAM (1?0?1?0)
     Route: 048
  10. ZOLPIDEM ARISTO [Concomitant]
     Indication: PRODUCT USED FOR UNKNOWN INDICATION
     Dosage: 10 MILLIGRAM (0?0?0.5?0)
     Route: 048
  11. TIOBLIS [Concomitant]
     Active Substance: ATORVASTATIN CALCIUM\EZETIMIBE
     Indication: PRODUCT USED FOR UNKNOWN INDICATION
     Dosage: UNK (40|10 MG, 0?0?1?0)
     Route: 048

REACTIONS (4)
  - Vomiting [Unknown]
  - Product prescribing error [Unknown]
  - Medication error [Unknown]
  - Nausea [Unknown]
